FAERS Safety Report 23066023 (Version 4)
Quarter: 2023Q4

REPORT INFORMATION
  Report Type: Report from Study
  Country: RU (occurrence: RU)
  Receive Date: 20231014
  Receipt Date: 20231104
  Transmission Date: 20240110
  Serious: Yes (Hospitalization)
  Sender: FDA-Public Use
  Company Number: RU-002147023-NVSC2023RU215737

PATIENT
  Age: 2 Month
  Sex: Female
  Weight: 6 kg

DRUGS (11)
  1. ZOLGENSMA [Suspect]
     Active Substance: ONASEMNOGENE ABEPARVOVEC-XIOI
     Indication: Spinal muscular atrophy
     Dosage: 35.8 ML ONCE/SINGLE (PACK 2: 8.3 ML)
     Route: 042
     Dates: start: 20230915, end: 20230915
  2. ZOLGENSMA [Suspect]
     Active Substance: ONASEMNOGENE ABEPARVOVEC-XIOI
     Dosage: 35.8 ML ONCE/SINGLE (PACK 1: 5.5 ML)
     Route: 042
  3. OMEPRAZOLE [Concomitant]
     Active Substance: OMEPRAZOLE
     Indication: Product used for unknown indication
     Dosage: 5 MG, QD (AT NIGHT AT 6:30 BEFORE THE HORMONAL THERAPY)
     Route: 065
  4. LEVOCARNITINE [Concomitant]
     Active Substance: LEVOCARNITINE
     Indication: Product used for unknown indication
     Dosage: 5 DRP TID 3 TIMES A DAY (MORNING,  LUNCH,  EVENING) - 2  MONTHS  (COURSES X 3 TIMES A YEAR).
     Route: 065
  5. UBIDECARENONE [Concomitant]
     Active Substance: UBIDECARENONE
     Indication: Product used for unknown indication
     Dosage: 5 DRP, BID 2 TIMES A DAY (MORNING,  EVENING) ? 2  MONTHS (COURSES X 3 TIMES A YEAR)
     Route: 065
  6. URSODIOL [Concomitant]
     Active Substance: URSODIOL
     Indication: Product used for unknown indication
     Dosage: 1.8 ML, QD (AT NIGHT ONCE A DAY - 6 MONTHS)
     Route: 065
  7. PREDNISOLONE [Concomitant]
     Active Substance: PREDNISOLONE
     Indication: Product used for unknown indication
     Dosage: 6.25 MG
     Route: 065
     Dates: start: 20231014
  8. PREDNISOLONE [Concomitant]
     Active Substance: PREDNISOLONE
     Dosage: 5 MG
     Route: 065
     Dates: start: 20231015, end: 20231021
  9. PREDNISOLONE [Concomitant]
     Active Substance: PREDNISOLONE
     Dosage: 3/4 TABLET
     Route: 065
     Dates: start: 20231022
  10. PREDNISOLONE [Concomitant]
     Active Substance: PREDNISOLONE
     Dosage: 1/2 TABLET
     Route: 065
     Dates: start: 20231029
  11. PREDNISOLONE [Concomitant]
     Active Substance: PREDNISOLONE
     Dosage: 1/4 TABLET
     Route: 065

REACTIONS (1)
  - Blood test abnormal [Not Recovered/Not Resolved]

NARRATIVE: CASE EVENT DATE: 20230915
